FAERS Safety Report 8263451-3 (Version None)
Quarter: 2012Q2

REPORT INFORMATION
  Report Type: 
  Country: None (occurrence: None)
  Receive Date: 20120405
  Receipt Date: 20120327
  Transmission Date: 20120825
  Serious: Yes (Other)
  Sender: FDA-Public Use
  Company Number: US-ABBOTT-12P-163-0919233-00

PATIENT
  Sex: Female
  Weight: 59.02 kg

DRUGS (10)
  1. BIRTH CONTROL IMPLANT [Concomitant]
     Indication: PRODUCT USED FOR UNKNOWN INDICATION
  2. LORTAB [Concomitant]
     Indication: ARTHRALGIA
  3. NYSTATIN [Concomitant]
     Indication: PRODUCT USED FOR UNKNOWN INDICATION
  4. LEXAPRO [Concomitant]
     Indication: PRODUCT USED FOR UNKNOWN INDICATION
  5. MELOXICAM [Concomitant]
     Indication: RHEUMATOID ARTHRITIS
  6. PREDNISONE [Concomitant]
     Indication: RHEUMATOID ARTHRITIS
  7. ONDANCETRON [Concomitant]
     Indication: PRODUCT USED FOR UNKNOWN INDICATION
  8. HUMIRA [Suspect]
     Indication: RHEUMATOID ARTHRITIS
     Route: 050
     Dates: start: 20111001, end: 20120322
  9. LORATADINE [Concomitant]
     Indication: HYPERSENSITIVITY
  10. AMLODIPINE [Concomitant]
     Indication: RAYNAUD'S PHENOMENON

REACTIONS (2)
  - SINUSITIS [None]
  - PRECANCEROUS SKIN LESION [None]
